FAERS Safety Report 8948268 (Version 2)
Quarter: 2012Q4

REPORT INFORMATION
  Report Type: 
  Country: US (occurrence: None)
  Receive Date: 20121206
  Receipt Date: 20121217
  Transmission Date: 20130627
  Serious: Yes (Death, Hospitalization)
  Sender: FDA-Public Use
  Company Number: None

PATIENT
  Age: 73 Year
  Sex: Male
  Weight: 79.38 kg

DRUGS (4)
  1. MEDROL [Suspect]
     Indication: KNEE ARTHRITIS
     Dates: start: 20120809, end: 20120809
  2. MEDROL [Suspect]
     Indication: KNEE PAIN
     Dates: start: 20120809, end: 20120809
  3. TRIAMCINOLONE [Suspect]
     Indication: KNEE ARTHRITIS
     Dates: start: 20120809, end: 20120809
  4. TRIAMCINOLONE [Suspect]
     Indication: KNEE PAIN
     Dates: start: 20120809, end: 20120809

REACTIONS (7)
  - Joint swelling [None]
  - Pain [None]
  - Alcohol withdrawal syndrome [None]
  - Delirium [None]
  - Cerebral infarction [None]
  - Parkinsonism [None]
  - Meningitis fungal [None]
